FAERS Safety Report 25778727 (Version 1)
Quarter: 2025Q3

REPORT INFORMATION
  Report Type: Spontaneous
  Country: JP (occurrence: JP)
  Receive Date: 20250909
  Receipt Date: 20250909
  Transmission Date: 20251020
  Serious: Yes (Hospitalization)
  Sender: BAYER HEALTHCARE PHARMACEUTICALS INC.
  Company Number: JP-BAYER-2025A114550

PATIENT
  Sex: Female

DRUGS (3)
  1. YAZ [Suspect]
     Active Substance: DROSPIRENONE\ETHINYL ESTRADIOL
     Indication: Polycystic ovarian syndrome
     Route: 048
     Dates: start: 2022
  2. YAZ [Suspect]
     Active Substance: DROSPIRENONE\ETHINYL ESTRADIOL
     Indication: Menstruation irregular
  3. LEVOCETIRIZINE DIHYDROCHLORIDE [Concomitant]
     Active Substance: LEVOCETIRIZINE DIHYDROCHLORIDE
     Route: 048

REACTIONS (11)
  - Anaphylactic shock [None]
  - Vaginal haemorrhage [None]
  - Weight increased [None]
  - Bulimia nervosa [None]
  - Constipation [None]
  - Affect lability [None]
  - Rib fracture [None]
  - Herpes zoster [None]
  - Intermenstrual bleeding [None]
  - Product use in unapproved indication [None]
  - Wrong schedule [None]

NARRATIVE: CASE EVENT DATE: 20220101
